FAERS Safety Report 12587694 (Version 2)
Quarter: 2016Q3

REPORT INFORMATION
  Report Type: Spontaneous
  Country: DE (occurrence: DE)
  Receive Date: 20160725
  Receipt Date: 20160812
  Transmission Date: 20161109
  Serious: Yes (Hospitalization)
  Sender: FDA-Public Use
  Company Number: DE-009507513-1607DEU007332

PATIENT
  Age: 76 Year
  Sex: Female

DRUGS (5)
  1. CITALOPRAM [Concomitant]
     Active Substance: CITALOPRAM HYDROBROMIDE
     Indication: RESTLESSNESS
     Dosage: ^DAILY DOSE: 20 MG MILLIGRAM(S) EVERY DAY^ {20 MG MILLIGRAM(S), 1 IN 1 DAY}
  2. MIRTAZAPINE. [Concomitant]
     Active Substance: MIRTAZAPINE
     Indication: RESTLESSNESS
     Dosage: ^DAILY DOSE: 30 MG MILLIGRAM(S) EVERY DAY^ {30 MG MILLIGRAM(S), 1 IN 1 DAY}
  3. HYDROCHLOROTHIAZIDE (+) VALSARTAN [Concomitant]
     Active Substance: HYDROCHLOROTHIAZIDE\VALSARTAN
     Indication: HYPERTENSION
     Dosage: 100/12.5 (UNITS NOT PROVIDED), QAM
  4. THYROXIN [Concomitant]
     Active Substance: LEVOTHYROXINE
     Indication: HYPOTHYROIDISM
     Dosage: ^DAILY DOSE: 50 UG MICROGRAM(S) EVERY DAY^ {50 UG MICROGRAM(S), 1 IN 1 DAY}
  5. KEYTRUDA [Suspect]
     Active Substance: PEMBROLIZUMAB
     Indication: METASTASIS
     Dosage: 2 MG/KG, EVERY 14 DAYS (150 MG)
     Dates: start: 20151112

REACTIONS (2)
  - Product use issue [Unknown]
  - Pulmonary sarcoidosis [Not Recovered/Not Resolved]

NARRATIVE: CASE EVENT DATE: 20151112
